FAERS Safety Report 5730632-X (Version None)
Quarter: 2008Q2

REPORT INFORMATION
  Report Type: 
  Country: None (occurrence: None)
  Receive Date: 20080506
  Receipt Date: 20080506
  Transmission Date: 20081010
  Serious: No
  Sender: FDA-Public Use
  Company Number: None

PATIENT
  Age: 78 Year
  Sex: Female
  Weight: 61.2356 kg

DRUGS (1)
  1. BOTOX COSMETIC [Suspect]
     Indication: TREMOR
     Dates: start: 20070501, end: 20070501

REACTIONS (7)
  - DYSPHAGIA [None]
  - HEADACHE [None]
  - IMPAIRED WORK ABILITY [None]
  - MUSCULAR WEAKNESS [None]
  - NECK PAIN [None]
  - POSTURE ABNORMAL [None]
  - WEIGHT DECREASED [None]
